FAERS Safety Report 10048711 (Version 1)
Quarter: 2014Q1

REPORT INFORMATION
  Report Type: Spontaneous
  Country: IT (occurrence: IT)
  Receive Date: 20140331
  Receipt Date: 20140331
  Transmission Date: 20141002
  Serious: Yes (Life-Threatening)
  Sender: FDA-Public Use
  Company Number: IT-VERTEX PHARMACEUTICALS INC-2014-001673

PATIENT
  Age: 71 Year
  Sex: Male

DRUGS (3)
  1. INCIVO [Suspect]
     Indication: CHRONIC HEPATITIS C
     Dosage: 2250 MG, QD
     Route: 048
     Dates: start: 20130514, end: 20130712
  2. PEGINTERFERON ALFA-2A [Suspect]
     Indication: CHRONIC HEPATITIS C
     Dosage: 180 ?G, QW
     Route: 058
     Dates: start: 20130416, end: 20140317
  3. RIBAVIRIN [Suspect]
     Indication: CHRONIC HEPATITIS C
     Dosage: 1200 MG, QD
     Route: 048
     Dates: start: 20130416

REACTIONS (1)
  - Rash [Recovered/Resolved]
